FAERS Safety Report 7629720-2 (Version None)
Quarter: 2011Q3

REPORT INFORMATION
  Report Type: 
  Country: None (occurrence: None)
  Receive Date: 20110722
  Receipt Date: 20110720
  Transmission Date: 20111222
  Serious: Yes (Life-Threatening, Hospitalization)
  Sender: FDA-Public Use
  Company Number: ES-SANOFI-AVENTIS-2011SA046227

PATIENT
  Sex: Male

DRUGS (2)
  1. PREDNISONE [Suspect]
     Indication: PROSTATE CANCER
     Route: 048
     Dates: start: 20110307
  2. CABAZITAXEL [Suspect]
     Indication: PROSTATE CANCER
     Route: 042

REACTIONS (1)
  - RHABDOMYOLYSIS [None]
